FAERS Safety Report 4296276-4 (Version None)
Quarter: 2004Q1

REPORT INFORMATION
  Report Type: 
  Country: None (occurrence: None)
  Receive Date: 20040213
  Receipt Date: 20040213
  Transmission Date: 20041129
  Serious: Yes (Hospitalization)
  Sender: FDA-Public Use
  Company Number: None

PATIENT
  Sex: Male
  Weight: 104.3273 kg

DRUGS (6)
  1. ATACAND HCT [Suspect]
     Indication: HYPERTENSION
     Dosage: 32/25 MG PO QD
     Route: 048
  2. CARDURA [Suspect]
     Indication: PROSTATIC DISORDER
     Dosage: 4 MG PO QD
     Route: 048
  3. PROSCAR [Concomitant]
  4. ALLOPURINOL [Concomitant]
  5. ALPHAGAN [Concomitant]
  6. PREVACID [Concomitant]

REACTIONS (2)
  - DIZZINESS [None]
  - SYNCOPE [None]
